FAERS Safety Report 5996886-X (Version None)
Quarter: 2008Q4

REPORT INFORMATION
  Report Type: 
  Country: None (occurrence: None)
  Receive Date: 20081212
  Receipt Date: 20081028
  Transmission Date: 20090506
  Serious: No
  Sender: FDA-Public Use
  Company Number: US-ABBOTT-08P-163-0484278-00

PATIENT
  Sex: Male
  Weight: 86.26 kg

DRUGS (3)
  1. HUMIRA [Suspect]
     Indication: PSORIASIS
     Route: 058
     Dates: start: 20070301, end: 20080601
  2. HUMIRA [Suspect]
     Route: 058
     Dates: start: 20080601
  3. TOPICAL CREAMS [Concomitant]
     Indication: PSORIASIS
     Route: 061

REACTIONS (1)
  - DRUG INEFFECTIVE [None]
